FAERS Safety Report 4719258-4 (Version None)
Quarter: 2005Q3

REPORT INFORMATION
  Report Type: 
  Country: None (occurrence: None)
  Receive Date: 20050719
  Receipt Date: 20050719
  Transmission Date: 20060218
  Serious: Yes (Other)
  Sender: FDA-Public Use
  Company Number: None

PATIENT
  Age: 26 Year
  Sex: Female
  Weight: 54.4316 kg

DRUGS (1)
  1. AZITHROMYCIN [Suspect]
     Indication: SINUSITIS
     Dosage: 1 PILL 1 TIME PER DAY ORAL
     Route: 048
     Dates: start: 20050208, end: 20050211

REACTIONS (2)
  - GASTROINTESTINAL PAIN [None]
  - MALAISE [None]
